FAERS Safety Report 20595319 (Version 1)
Quarter: 2022Q1

REPORT INFORMATION
  Report Type: Spontaneous
  Country: US (occurrence: US)
  Receive Date: 20220315
  Receipt Date: 20220315
  Transmission Date: 20220423
  Serious: No
  Sender: FDA-Public Use
  Company Number: US-AIMMUNE THERAPEUTICS, INC.-2022AIMT00172

PATIENT

DRUGS (8)
  1. PALFORZIA [Suspect]
     Active Substance: PEANUT
     Indication: Food allergy
     Dosage: 40 MG, 1X/DAY
     Route: 048
     Dates: start: 2022, end: 20220222
  2. PALFORZIA [Suspect]
     Active Substance: PEANUT
     Dosage: 40 MG, 1X/DAY, LAST DOSE PRIOR DOSE OMMISION
     Route: 048
     Dates: start: 20220222, end: 20220222
  3. PALFORZIA [Suspect]
     Active Substance: PEANUT
     Dosage: 40 MG, 1X/DAY, RESTART
     Route: 048
     Dates: start: 20220224
  4. PALFORZIA [Suspect]
     Active Substance: PEANUT
     Dosage: 40 MG, ONCE, LAST DOSE PRIOR TO EVENTS
     Route: 048
     Dates: start: 20220224, end: 20220224
  5. ALBUTEROL [Concomitant]
     Active Substance: ALBUTEROL
     Indication: Product used for unknown indication
     Dosage: 90 MICROGRAM, 2 PUFFS AS NEEDED
  6. ZYRTEC [Concomitant]
     Active Substance: CETIRIZINE HYDROCHLORIDE
     Indication: Product used for unknown indication
     Dosage: 10 MG, 1X/DAY
     Route: 048
  7. FLOVENT [Concomitant]
     Active Substance: FLUTICASONE PROPIONATE
     Indication: Product used for unknown indication
     Dosage: 110 MICROGRAM, 2 PUFFS 1X/DAY
  8. PROZAC [Concomitant]
     Active Substance: FLUOXETINE HYDROCHLORIDE
     Indication: Product used for unknown indication
     Dosage: 20 MG, 1X/DAY
     Route: 048

REACTIONS (5)
  - Product dose omission issue [Recovered/Resolved]
  - Chest discomfort [Recovered/Resolved]
  - Anaphylactic reaction [Recovered/Resolved]
  - Dyspnoea [Recovered/Resolved]
  - Nausea [Recovered/Resolved]

NARRATIVE: CASE EVENT DATE: 20220223
